FAERS Safety Report 13667131 (Version 1)
Quarter: 2017Q2

REPORT INFORMATION
  Report Type: Report from Study
  Country: KR (occurrence: KR)
  Receive Date: 20170619
  Receipt Date: 20170619
  Transmission Date: 20170830
  Serious: Yes (Hospitalization)
  Sender: FDA-Public Use
  Company Number: KR-DSJP-DSJ-2017-118598AA

PATIENT

DRUGS (4)
  1. CHOLINE ALFOSCERATE [Concomitant]
     Active Substance: CHOLINE ALFOSCERATE
     Indication: THROMBOTIC STROKE
     Dosage: 400 MG, QD
     Route: 048
     Dates: start: 20150917
  2. ATORVASTATIN CALCIUM ANHYDROUS [Concomitant]
     Indication: THROMBOTIC STROKE
     Dosage: 10 MG, QD
     Route: 048
     Dates: start: 20140218
  3. EDOXABAN [Suspect]
     Active Substance: EDOXABAN TOSYLATE
     Indication: ATRIAL FIBRILLATION
     Dosage: 60MG/DAY
     Route: 048
     Dates: start: 20170310
  4. NEBILET [Concomitant]
     Active Substance: NEBIVOLOL
     Indication: THROMBOTIC STROKE
     Dosage: 0.5 DF, QD
     Route: 048
     Dates: start: 20110923

REACTIONS (1)
  - Pneumonia [Recovered/Resolved]

NARRATIVE: CASE EVENT DATE: 20170531
